FAERS Safety Report 8264879-8 (Version None)
Quarter: 2012Q2

REPORT INFORMATION
  Report Type: 
  Country: None (occurrence: None)
  Receive Date: 20120406
  Receipt Date: 20120326
  Transmission Date: 20120825
  Serious: Yes (Other)
  Sender: FDA-Public Use
  Company Number: US-ELI_LILLY_AND_COMPANY-US201202003866

PATIENT
  Sex: Male
  Weight: 223.13 kg

DRUGS (15)
  1. CYMBALTA [Suspect]
     Indication: DIABETIC NEUROPATHY
     Dosage: 30 MG, QD
     Route: 048
     Dates: start: 20111227
  2. PLAVIX [Concomitant]
     Dosage: 75 MG, QD
     Route: 048
  3. TAMSULOSIN HCL [Concomitant]
     Dosage: 0.4 MG, UNKNOWN
     Route: 048
  4. NASONEX AQUEOUS [Concomitant]
     Dosage: 50 UG, UNKNOWN
     Route: 045
  5. JANUMET [Concomitant]
     Dosage: 1 DF, UNKNOWN
     Route: 048
  6. GENTAMICIN SULFATE [Concomitant]
     Indication: ULCER
     Dosage: 1 DF, QD
     Route: 061
     Dates: start: 20120130
  7. VITAMIIN C [Concomitant]
     Dosage: 500 MG, QD
     Route: 048
  8. TYLENOL W/ CODEINE NO. 3 [Concomitant]
     Dosage: 1 DF, UNKNOWN
     Route: 048
  9. FLOMAX [Concomitant]
  10. ALLOPURINOL [Concomitant]
     Dosage: 300 MG, QD
     Route: 048
  11. DIOVAN HCT [Concomitant]
     Dosage: 1 DF, UNKNOWN
     Route: 048
  12. VITAMIN D [Concomitant]
     Dosage: 50000 U, UNKNOWN
     Route: 048
  13. CYANOCOBALAMIN [Concomitant]
     Dosage: 1 DF, BID
     Route: 048
     Dates: start: 20110316
  14. METOPROLOL                         /00376901/ [Concomitant]
     Dosage: 2 DF, QD
     Route: 048
  15. COLCHICINE [Concomitant]
     Dosage: 0.6 MG, UNKNOWN
     Route: 048

REACTIONS (3)
  - SKIN ULCER [None]
  - LIMB INJURY [None]
  - CELLULITIS [None]
